FAERS Safety Report 4885375-1 (Version None)
Quarter: 2005Q4

REPORT INFORMATION
  Report Type: 
  Country: None (occurrence: None)
  Receive Date: 20051222
  Receipt Date: 20050608
  Transmission Date: 20060501
  Serious: Yes (Life-Threatening)
  Sender: FDA-Public Use
  Company Number: 05H-163-0300445-00

PATIENT
  Age: 38 Year
  Sex: Female

DRUGS (1)
  1. MORPHINE SULFATE INJ [Suspect]
     Dosage: 3 MG /HR CONTINUOUS RATE INTERVENOUS
     Route: 042
     Dates: start: 20050408

REACTIONS (1)
  - RESPIRATORY DEPRESSION [None]
